FAERS Safety Report 16408613 (Version 1)
Quarter: 2019Q2

REPORT INFORMATION
  Report Type: Spontaneous
  Country: CN (occurrence: CN)
  Receive Date: 20190610
  Receipt Date: 20190610
  Transmission Date: 20190711
  Serious: Yes (Life-Threatening, Hospitalization)
  Sender: FDA-Public Use
  Company Number: CN-ROCHE-2326355

PATIENT
  Age: 49 Year
  Sex: Male

DRUGS (5)
  1. TAMIFLU [Suspect]
     Active Substance: OSELTAMIVIR PHOSPHATE
     Indication: UNEVALUABLE EVENT
     Route: 065
  2. DICLOFENAC [Concomitant]
     Active Substance: DICLOFENAC
     Indication: PAIN
  3. MUCOSOLVAN [Concomitant]
     Active Substance: AMBROXOL HYDROCHLORIDE
     Indication: PRODUCTIVE COUGH
  4. DOXYCYCLINE. [Concomitant]
     Active Substance: DOXYCYCLINE
  5. BIAPENEM [Concomitant]
     Active Substance: BIAPENEM

REACTIONS (8)
  - Nausea [Unknown]
  - Cardiac arrest [Unknown]
  - Influenza virus test positive [Unknown]
  - Lung infection [Unknown]
  - Pyrexia [Unknown]
  - Hyponatraemia [Unknown]
  - Asthenia [Unknown]
  - Respiratory arrest [Unknown]

NARRATIVE: CASE EVENT DATE: 20170122
